FAERS Safety Report 5827842-X (Version None)
Quarter: 2008Q3

REPORT INFORMATION
  Report Type: 
  Country: None (occurrence: None)
  Receive Date: 20080728
  Receipt Date: 20080718
  Transmission Date: 20090109
  Serious: Yes (Death)
  Sender: FDA-Public Use
  Company Number: 89560

PATIENT
  Age: 20 Year
  Sex: Female

DRUGS (4)
  1. IBUPROFEN [Suspect]
     Indication: STILL'S DISEASE ADULT ONSET
     Dosage: ORAL
     Route: 048
  2. ETANERCEPT [Concomitant]
  3. METHYLPREDISOLON [Concomitant]
  4. PHENYLBUTAZONE [Concomitant]

REACTIONS (11)
  - BRAIN INJURY [None]
  - BRAIN OEDEMA [None]
  - COMA [None]
  - CONFUSIONAL STATE [None]
  - GRAND MAL CONVULSION [None]
  - HAEMODYNAMIC INSTABILITY [None]
  - HEPATIC ENZYME INCREASED [None]
  - HISTIOCYTOSIS HAEMATOPHAGIC [None]
  - SERUM FERRITIN DECREASED [None]
  - VISUAL IMPAIRMENT [None]
  - WHITE BLOOD CELL COUNT DECREASED [None]
